FAERS Safety Report 8996797 (Version 1)
Quarter: 2012Q4

REPORT INFORMATION
  Report Type: Spontaneous
  Country: GB (occurrence: None)
  Receive Date: 20121220
  Receipt Date: 20121220
  Transmission Date: 20130627
  Serious: Yes (Life-Threatening, Hospitalization)
  Sender: FDA-Public Use
  Company Number: 2012-22276

PATIENT
  Age: 45 Year
  Sex: Female
  Weight: 75 kg

DRUGS (4)
  1. IBUPROFEN (UNKNOWN) (IBUPROFEN) UNK, UNKUNK [Suspect]
     Indication: BACK PAIN
     Dosage: up to 2.4 g per day
     Route: 048
     Dates: start: 2002, end: 20051019
  2. CO-CODAMOL (CODEINE PHOSPHATE, PARACETAMOL) [Concomitant]
  3. GTN (GLYCERYL TRINITRATE) [Concomitant]
  4. EVENING PRIMROSE OIL (OENOTHERA BIENNIS OIL) [Concomitant]

REACTIONS (3)
  - Microcytic anaemia [None]
  - Angina pectoris [None]
  - Oedema peripheral [None]
